FAERS Safety Report 5325946-1 (Version None)
Quarter: 2007Q2

REPORT INFORMATION
  Report Type: 
  Country: None (occurrence: None)
  Receive Date: 20070514
  Receipt Date: 20070514
  Transmission Date: 20071010
  Serious: Yes (Other)
  Sender: FDA-Public Use
  Company Number: None

PATIENT
  Age: 46 Year
  Sex: Male
  Weight: 64.4108 kg

DRUGS (2)
  1. PEGASYS [Suspect]
     Indication: HEPATITIS C
     Dosage: 180MCG QWEEK SQ
     Route: 058
     Dates: start: 20060512, end: 20070331
  2. RIBAVIRIN [Suspect]
     Indication: HEPATITIS C
     Dosage: 200MG 1000MG/DAY PO
     Route: 048
     Dates: start: 20060512, end: 20070331

REACTIONS (1)
  - ANAEMIA [None]
